FAERS Safety Report 23094275 (Version 2)
Quarter: 2023Q4

REPORT INFORMATION
  Report Type: Spontaneous
  Country: US (occurrence: None)
  Receive Date: 20231023
  Receipt Date: 20231128
  Transmission Date: 20240110
  Serious: Yes (Other)
  Sender: FDA-Public Use
  Company Number: 2023A238658

PATIENT
  Age: 81 Year
  Sex: Female
  Weight: 109.3 kg

DRUGS (1)
  1. FARXIGA [Suspect]
     Active Substance: DAPAGLIFLOZIN PROPANEDIOL
     Indication: Diabetic nephropathy
     Route: 048

REACTIONS (4)
  - Alopecia [Unknown]
  - Rash macular [Unknown]
  - Hypersensitivity [Unknown]
  - Rash pruritic [Unknown]
